FAERS Safety Report 9404303 (Version 1)
Quarter: 2013Q3

REPORT INFORMATION
  Report Type: Spontaneous
  Country: FR (occurrence: FR)
  Receive Date: 20130717
  Receipt Date: 20130717
  Transmission Date: 20140515
  Serious: Yes (Death, Hospitalization, Other)
  Sender: FDA-Public Use
  Company Number: FR-ELI_LILLY_AND_COMPANY-FR201307004262

PATIENT
  Age: 62 Year
  Sex: Male

DRUGS (2)
  1. ALIMTA [Suspect]
     Dosage: UNK
     Route: 042
     Dates: start: 20120731, end: 201302
  2. CISPLATIN [Concomitant]
     Dosage: UNK
     Dates: start: 20120731, end: 20120821

REACTIONS (4)
  - Multi-organ failure [Fatal]
  - Malignant neoplasm progression [Not Recovered/Not Resolved]
  - Periorbital oedema [Not Recovered/Not Resolved]
  - Oedema peripheral [Not Recovered/Not Resolved]
